FAERS Safety Report 8602370-7 (Version None)
Quarter: 2012Q3

REPORT INFORMATION
  Report Type: 
  Country: None (occurrence: None)
  Receive Date: 20120817
  Receipt Date: 20120810
  Transmission Date: 20120928
  Serious: Yes (Disabling, Other)
  Sender: FDA-Public Use
  Company Number: GB-B.I. PHARMACEUTICALS,INC./RIDGEFIELD-2012-UK-01063UK

PATIENT
  Age: 89 Year
  Sex: Male
  Weight: 73 kg

DRUGS (25)
  1. E45 ITCH RELIEF [Concomitant]
     Dates: start: 20120601, end: 20120701
  2. GOSERELIN [Concomitant]
     Dates: start: 20120720
  3. SENNA [Concomitant]
     Dates: start: 20120410, end: 20120510
  4. SENNA [Concomitant]
     Dates: start: 20120619, end: 20120719
  5. BETAMETHASONE VALERATE [Concomitant]
     Dates: start: 20120529, end: 20120605
  6. BICALUTAMIDE [Concomitant]
     Dates: start: 20120510
  7. DERMOL SOL [Concomitant]
     Dates: start: 20120529, end: 20120613
  8. ENALAPRIL [Concomitant]
     Dates: start: 20120410
  9. IBUPROFEN [Concomitant]
     Dates: start: 20120619, end: 20120719
  10. ACETAMINOPHEN [Concomitant]
     Dates: start: 20120601, end: 20120617
  11. SENNA [Concomitant]
     Dates: start: 20120723
  12. DILTIAZEM HCL [Concomitant]
     Dates: start: 20120601, end: 20120629
  13. DILTIAZEM HCL [Concomitant]
     Dates: start: 20120410, end: 20120508
  14. ASPIRIN [Concomitant]
     Dates: start: 20120619
  15. ATORVASTATIN [Concomitant]
     Dates: start: 20120709
  16. BENDROFLUMETHIAZIDE [Concomitant]
     Dates: start: 20120410
  17. LACTULOSE [Concomitant]
     Dates: start: 20120619, end: 20120704
  18. E45 ITCH RELIEF [Concomitant]
     Dates: start: 20120423, end: 20120503
  19. LACTULOSE [Concomitant]
     Dates: start: 20120510, end: 20120525
  20. DILTIAZEM HCL [Concomitant]
     Dates: start: 20120423
  21. DERMOL SOL [Concomitant]
     Dates: start: 20120626, end: 20120711
  22. E45 ITCH RELIEF [Concomitant]
     Dates: start: 20120723
  23. GOSERELIN [Concomitant]
     Dates: start: 20120528, end: 20120625
  24. WARFARIN SODIUM [Concomitant]
     Dates: start: 20120419
  25. PRADAXA [Suspect]
     Dates: start: 20120724

REACTIONS (3)
  - ARTHRALGIA [None]
  - MALAISE [None]
  - NAUSEA [None]
